FAERS Safety Report 7885376-5 (Version None)
Quarter: 2011Q4

REPORT INFORMATION
  Report Type: 
  Country: None (occurrence: None)
  Receive Date: 20111102
  Receipt Date: 20111031
  Transmission Date: 20120403
  Serious: No
  Sender: FDA-Public Use
  Company Number: US-PFIZER INC-2011206147

PATIENT
  Sex: Female
  Weight: 56.689 kg

DRUGS (3)
  1. ACTONEL [Concomitant]
     Indication: OSTEOPOROSIS
     Dosage: UNK
  2. VENLAFAXINE [Concomitant]
     Indication: HOT FLUSH
     Dosage: 150 MG, UNK
  3. LIPITOR [Suspect]
     Indication: BLOOD CHOLESTEROL INCREASED
     Dosage: 10 MG, 1X/DAY
     Route: 048
     Dates: start: 20110620

REACTIONS (1)
  - ABNORMAL DREAMS [None]
